FAERS Safety Report 9406931 (Version 2)
Quarter: 2015Q2

REPORT INFORMATION
  Report Type: Spontaneous
  Country: US (occurrence: US)
  Receive Date: 20130718
  Receipt Date: 20150515
  Transmission Date: 20150821
  Serious: No
  Sender: FDA-Public Use
  Company Number: US-PFIZER INC-2013207924

PATIENT
  Age: 64 Year
  Sex: Female

DRUGS (12)
  1. CELEBREX [Suspect]
     Active Substance: CELECOXIB
     Dosage: UNK
  2. DICLOFENAC EPOLAMINE [Suspect]
     Active Substance: DICLOFENAC EPOLAMINE
     Dosage: UNK
  3. LYRICA [Concomitant]
     Active Substance: PREGABALIN
     Dosage: 100 MG, 2X/DAY
  4. TOPROL XL [Concomitant]
     Active Substance: METOPROLOL SUCCINATE
     Dosage: 50 MG, 1X/DAY
  5. BEXTRA [Suspect]
     Active Substance: VALDECOXIB
     Dosage: UNK
  6. LISINOPRIL. [Suspect]
     Active Substance: LISINOPRIL
     Dosage: UNK
  7. ASPIRIN. [Concomitant]
     Active Substance: ASPIRIN
     Dosage: 81 MG, 1X/DAY
  8. OMEPRAZOLE. [Concomitant]
     Active Substance: OMEPRAZOLE
     Dosage: 20 MG, 2X/DAY
  9. BENAZEPRIL HCL [Concomitant]
     Active Substance: BENAZEPRIL HYDROCHLORIDE
     Dosage: 10 MG, 2X/DAY
  10. WARFARIN [Concomitant]
     Active Substance: WARFARIN
     Dosage: 5 MG, 1X/DAY
  11. CARVEDILOL. [Suspect]
     Active Substance: CARVEDILOL
     Dosage: UNK
  12. SIMVASTATIN. [Concomitant]
     Active Substance: SIMVASTATIN
     Dosage: 20 MG, QHS (EVERY EVENING/BEDTIME)

REACTIONS (1)
  - Drug hypersensitivity [Unknown]
